FAERS Safety Report 20916815 (Version 1)
Quarter: 2022Q2

REPORT INFORMATION
  Report Type: Report from Study
  Country: US (occurrence: US)
  Receive Date: 20220605
  Receipt Date: 20220605
  Transmission Date: 20220721
  Serious: Yes (Hospitalization, Other)
  Sender: FDA-Public Use
  Company Number: US-BRISTOL-MYERS SQUIBB COMPANY-2022-035632

PATIENT
  Age: 24 Year
  Sex: Male
  Weight: 37.03 kg

DRUGS (1)
  1. ZEPOSIA [Suspect]
     Active Substance: OZANIMOD HYDROCHLORIDE
     Indication: Colitis ulcerative
     Dosage: 0.92 MG, FREQUENCY: DAILY
     Route: 048
     Dates: start: 20220224

REACTIONS (1)
  - Colitis ulcerative [Unknown]
